FAERS Safety Report 9000319 (Version 1)
Quarter: 2013Q1

REPORT INFORMATION
  Report Type: Spontaneous
  Country: US (occurrence: US)
  Receive Date: 20130107
  Receipt Date: 20130107
  Transmission Date: 20140127
  Serious: No
  Sender: FDA-Public Use
  Company Number: US-009507513-1212USA009794

PATIENT
  Sex: 0

DRUGS (2)
  1. FOSAMAX [Suspect]
     Dosage: UNK
     Route: 048
  2. ALENDRONATE SODIUM [Suspect]
     Dosage: UNK
     Route: 048

REACTIONS (4)
  - Hyperventilation [Unknown]
  - Chest discomfort [Unknown]
  - Chest pain [Unknown]
  - Bone pain [Unknown]
